FAERS Safety Report 9767014 (Version 4)
Quarter: 2015Q2

REPORT INFORMATION
  Report Type: Spontaneous
  Country: US (occurrence: US)
  Receive Date: 20131217
  Receipt Date: 20150424
  Transmission Date: 20150821
  Serious: No
  Sender: FDA-Public Use
  Company Number: US-GLAXOSMITHKLINE-A1036898A

PATIENT
  Age: 60 Year
  Sex: Male

DRUGS (10)
  1. VOTRIENT [Suspect]
     Active Substance: PAZOPANIB HYDROCHLORIDE
     Indication: RENAL CANCER
     Dosage: 800 MG DAILY.
     Route: 048
     Dates: start: 20130706
  2. AMLODIPINE [Concomitant]
     Active Substance: AMLODIPINE BESYLATE
  3. LORATADINE. [Concomitant]
     Active Substance: LORATADINE
  4. LOSARTAN [Concomitant]
     Active Substance: LOSARTAN
  5. ASPIRIN. [Concomitant]
     Active Substance: ASPIRIN
  6. INSULIN [Concomitant]
     Active Substance: INSULIN NOS
  7. VOTRIENT [Suspect]
     Active Substance: PAZOPANIB HYDROCHLORIDE
     Indication: MALIGNANT URINARY TRACT NEOPLASM
  8. SIMVASTATIN. [Concomitant]
     Active Substance: SIMVASTATIN
  9. OXYCODONE [Concomitant]
     Active Substance: OXYCODONE
  10. GLIPIZIDE. [Concomitant]
     Active Substance: GLIPIZIDE

REACTIONS (4)
  - Lacrimation increased [Unknown]
  - Dysgeusia [Not Recovered/Not Resolved]
  - Abdominal pain upper [Unknown]
  - Ageusia [Not Recovered/Not Resolved]

NARRATIVE: CASE EVENT DATE: 201307
